FAERS Safety Report 4969209-2 (Version None)
Quarter: 2006Q2

REPORT INFORMATION
  Report Type: 
  Country: None (occurrence: None)
  Receive Date: 20060405
  Receipt Date: 20060317
  Transmission Date: 20061013
  Serious: Yes (Hospitalization)
  Sender: FDA-Public Use
  Company Number: 223558

PATIENT
  Age: 53 Year
  Sex: Female

DRUGS (7)
  1. AVASTIN [Suspect]
     Indication: METASTATIC RENAL CELL CARCINOMA
     Dosage: 5 MG/KG, INTRAVENOUS
     Route: 042
     Dates: start: 20051001
  2. ERLOTINIB(ERLOTINIB) TABLET, 150MG [Suspect]
     Indication: METASTATIC RENAL CELL CARCINOMA
     Dosage: 150 MG, QD, ORAL
     Route: 048
     Dates: start: 20050930
  3. VANCOMYCIN HYDROCHLORIDE [Concomitant]
  4. GLUCOTROL [Concomitant]
  5. PACKED RED BLOOD CELLS (BLOOD CELLS, RED) [Concomitant]
  6. MAGNESIUM OXIDE [Concomitant]
  7. KEFLEX [Concomitant]

REACTIONS (2)
  - HAEMOPTYSIS [None]
  - RASH [None]
